FAERS Safety Report 16771182 (Version 1)
Quarter: 2019Q3

REPORT INFORMATION
  Report Type: Spontaneous
  Country: RU (occurrence: RU)
  Receive Date: 20190904
  Receipt Date: 20190904
  Transmission Date: 20191005
  Serious: Yes (Hospitalization)
  Sender: FDA-Public Use
  Company Number: RU-ASTRAZENECA-2019SF24493

PATIENT
  Age: 6 Year
  Sex: Female

DRUGS (1)
  1. PULMICORT TURBUHALER [Suspect]
     Active Substance: BUDESONIDE
     Indication: WHEEZING
     Dosage: 0.5MG ONCE/SINGLE ADMINISTRATION
     Route: 055
     Dates: start: 20190826

REACTIONS (5)
  - Off label use [Unknown]
  - Choking [Unknown]
  - Product use in unapproved indication [Unknown]
  - Cough [Unknown]
  - Body temperature increased [Unknown]

NARRATIVE: CASE EVENT DATE: 20190826
